FAERS Safety Report 21878096 (Version 2)
Quarter: 2023Q4

REPORT INFORMATION
  Report Type: Report from Study
  Country: US (occurrence: US)
  Receive Date: 20230118
  Receipt Date: 20231009
  Transmission Date: 20240109
  Serious: No
  Sender: FDA-Public Use
  Company Number: US-ABBVIE-4273301

PATIENT
  Sex: Female

DRUGS (3)
  1. VENCLEXTA [Suspect]
     Active Substance: VENETOCLAX
     Indication: Immune system disorder
     Dosage: TAKE 1 TABLET BY MOUTH DAILY FOR 14 DAYS ON THEN 14 DAYS OFF TAKE WITH A MEAL AND WATER AT THE SA...
     Route: 048
  2. SCEMBLIX [Concomitant]
     Active Substance: ASCIMINIB HYDROCHLORIDE
     Indication: Chronic myeloid leukaemia
  3. DACOGEN [Concomitant]
     Active Substance: DECITABINE
     Indication: Chronic myeloid leukaemia

REACTIONS (1)
  - Off label use [Unknown]
